FAERS Safety Report 4505278-1 (Version None)
Quarter: 2004Q4

REPORT INFORMATION
  Report Type: 
  Country: None (occurrence: None)
  Receive Date: 20041015
  Receipt Date: 20040722
  Transmission Date: 20050328
  Serious: Yes (Hospitalization, Other)
  Sender: FDA-Public Use
  Company Number: 2004038006

PATIENT
  Age: 62 Year
  Sex: Female
  Weight: 55.7924 kg

DRUGS (2)
  1. NEURONTIN [Suspect]
     Indication: PAIN
     Dosage: 300 MG (300 M, 1 IN 1 D) ORAL
     Route: 048
     Dates: start: 20030101, end: 20031018
  2. ALL OTHER THERAPEUTIC PRODUCTS (ALL OTHER THERAPEUTIC PRODUCTS) [Concomitant]

REACTIONS (6)
  - APHASIA [None]
  - CARDIAC FAILURE [None]
  - CEREBROVASCULAR ACCIDENT [None]
  - FEELING ABNORMAL [None]
  - MYOCARDIAL INFARCTION [None]
  - SPEECH DISORDER [None]
